FAERS Safety Report 23714293 (Version 1)
Quarter: 2024Q2

REPORT INFORMATION
  Report Type: Spontaneous
  Country: US (occurrence: US)
  Receive Date: 20240405
  Receipt Date: 20240405
  Transmission Date: 20240716
  Serious: Yes (Other)
  Sender: FDA-Public Use
  Company Number: US-SA-SAC20240404000018

PATIENT
  Age: 89 Year
  Sex: Male

DRUGS (1)
  1. DUPIXENT [Suspect]
     Active Substance: DUPILUMAB
     Indication: Pruritus
     Dosage: 300 MG, QOW
     Route: 058

REACTIONS (8)
  - Cardiac pacemaker insertion [Unknown]
  - Nervousness [Unknown]
  - Anxiety [Unknown]
  - Feeling hot [Unknown]
  - Hyperhidrosis [Unknown]
  - Dizziness [Unknown]
  - Vision blurred [Unknown]
  - Product use in unapproved indication [Unknown]
